FAERS Safety Report 16683333 (Version 1)
Quarter: 2019Q3

REPORT INFORMATION
  Report Type: Spontaneous
  Country: US (occurrence: US)
  Receive Date: 20190808
  Receipt Date: 20190808
  Transmission Date: 20191004
  Serious: No
  Sender: FDA-Public Use
  Company Number: US-MYLANLABS-2019M1073417

PATIENT
  Sex: Female
  Weight: 72.57 kg

DRUGS (1)
  1. EPINEPHRINE. [Suspect]
     Active Substance: EPINEPHRINE
     Indication: LARYNGOSPASM
     Dosage: UNK
     Route: 065

REACTIONS (1)
  - Off label use [Unknown]
